FAERS Safety Report 9303578 (Version 2)
Quarter: 2013Q2

REPORT INFORMATION
  Report Type: Spontaneous
  Country: BR (occurrence: BR)
  Receive Date: 20130522
  Receipt Date: 20130625
  Transmission Date: 20140414
  Serious: No
  Sender: FDA-Public Use
  Company Number: PHHY2013BR049899

PATIENT
  Age: 34 Year
  Sex: Male

DRUGS (4)
  1. RITALIN [Suspect]
     Indication: ATTENTION DEFICIT/HYPERACTIVITY DISORDER
     Dosage: 2 DF, UNK
     Route: 048
     Dates: start: 201211
  2. RITALIN LA [Suspect]
     Dosage: 1 DF, UNK
     Route: 048
  3. RITALIN LA [Suspect]
     Dosage: UNK UKN, UNK
  4. RITALIN LA [Suspect]
     Dosage: 1 DF, UNK
     Route: 048

REACTIONS (2)
  - Migraine [Unknown]
  - Headache [Not Recovered/Not Resolved]
